FAERS Safety Report 13587497 (Version 1)
Quarter: 2017Q2

REPORT INFORMATION
  Report Type: Spontaneous
  Country: US (occurrence: US)
  Receive Date: 20170526
  Receipt Date: 20170526
  Transmission Date: 20170830
  Serious: Yes (Other)
  Sender: FDA-Public Use
  Company Number: None

PATIENT
  Age: 74 Year
  Sex: Male
  Weight: 99.5 kg

DRUGS (2)
  1. RIVAROXIBAN [Suspect]
     Active Substance: RIVAROXABAN
     Indication: CEREBROVASCULAR ACCIDENT PROPHYLAXIS
     Route: 048
     Dates: start: 20170315, end: 20170522
  2. RIVAROXIBAN [Suspect]
     Active Substance: RIVAROXABAN
     Indication: ATRIAL FIBRILLATION
     Route: 048
     Dates: start: 20170315, end: 20170522

REACTIONS (9)
  - Joint swelling [None]
  - Decreased appetite [None]
  - Musculoskeletal discomfort [None]
  - Pain in extremity [None]
  - Diarrhoea [None]
  - Flatulence [None]
  - Back pain [None]
  - Abdominal distension [None]
  - Weight increased [None]

NARRATIVE: CASE EVENT DATE: 20170526
